FAERS Safety Report 5759195-X (Version None)
Quarter: 2008Q2

REPORT INFORMATION
  Report Type: 
  Country: None (occurrence: None)
  Receive Date: 20080604
  Receipt Date: 20080523
  Transmission Date: 20081010
  Serious: Yes (Other)
  Sender: FDA-Public Use
  Company Number: GB-PFIZER INC-2008038540

PATIENT
  Age: 49 Year
  Sex: Female
  Weight: 77.5 kg

DRUGS (4)
  1. CHANTIX [Suspect]
     Route: 048
     Dates: start: 20080114, end: 20080303
  2. ACETAMINOPHEN W/ CODEINE [Concomitant]
  3. CODEINE SUL TAB [Concomitant]
  4. METRONIDAZOLE HCL [Concomitant]

REACTIONS (3)
  - SELF-INJURIOUS IDEATION [None]
  - SUICIDAL BEHAVIOUR [None]
  - TEARFULNESS [None]
